FAERS Safety Report 12873013 (Version 1)
Quarter: 2016Q4

REPORT INFORMATION
  Report Type: Spontaneous
  Country: CH (occurrence: CH)
  Receive Date: 20161021
  Receipt Date: 20161021
  Transmission Date: 20170207
  Serious: Yes (Life-Threatening)
  Sender: FDA-Public Use
  Company Number: PHHY2016CH143684

PATIENT
  Age: 68 Year
  Sex: Male
  Weight: 90.5 kg

DRUGS (3)
  1. VOLTAREN [Suspect]
     Active Substance: DICLOFENAC SODIUM
     Indication: MUSCULOSKELETAL PAIN
     Dosage: 75 MG, QD
     Route: 030
     Dates: start: 20160906, end: 20160907
  2. MARCOUMAR [Interacting]
     Active Substance: PHENPROCOUMON
     Indication: ATRIAL FIBRILLATION
     Dosage: 1 DF, (NACH INR-WERT)
     Route: 048
     Dates: start: 2012, end: 20160909
  3. TOREM [Concomitant]
     Active Substance: TORSEMIDE
     Indication: PRODUCT USED FOR UNKNOWN INDICATION
     Dosage: 10 MG, QD (1X10 MG/D)
     Route: 048

REACTIONS (5)
  - Injection site haematoma [Unknown]
  - International normalised ratio increased [Unknown]
  - Staphylococcal sepsis [Not Recovered/Not Resolved]
  - Necrotising fasciitis [Not Recovered/Not Resolved]
  - Drug administration error [Unknown]

NARRATIVE: CASE EVENT DATE: 20160906
